FAERS Safety Report 5216648-0 (Version None)
Quarter: 2007Q1

REPORT INFORMATION
  Report Type: 
  Country: None (occurrence: None)
  Receive Date: 20061130
  Receipt Date: 20060418
  Transmission Date: 20070707
  Serious: Yes (Hospitalization, Other)
  Sender: FDA-Public Use
  Company Number: US200604002774

PATIENT
  Sex: Female

DRUGS (10)
  1. ZYPREXA [Suspect]
     Indication: SCHIZOPHRENIA
     Dosage: 10 MG, 4/D
     Dates: start: 20031101
  2. CLONAZEPAM [Concomitant]
  3. SPIRIVA [Concomitant]
  4. MICARDIS [Concomitant]
  5. LASIX [Concomitant]
  6. KLOR-CON [Concomitant]
  7. THYROID TAB [Concomitant]
  8. EZETIMIBE (EZETIMIBE) [Concomitant]
  9. SIMVASTATIN [Concomitant]
  10. NEXIUM [Concomitant]

REACTIONS (4)
  - AGGRESSION [None]
  - DIABETES MELLITUS [None]
  - PRESCRIBED OVERDOSE [None]
  - WEIGHT INCREASED [None]
